FAERS Safety Report 8559223-2 (Version None)
Quarter: 2012Q3

REPORT INFORMATION
  Report Type: 
  Country: None (occurrence: None)
  Receive Date: 20120802
  Receipt Date: 20120723
  Transmission Date: 20120928
  Serious: Yes (Other)
  Sender: FDA-Public Use
  Company Number: US-009507513-1207USA011404

PATIENT

DRUGS (4)
  1. ACEON [Suspect]
     Dosage: 1 DF, QOD
     Route: 048
  2. ACEON [Suspect]
     Dosage: 4 MG, QD
     Route: 048
  3. CORDARONE [Suspect]
     Dosage: UNK DF, UNK
     Route: 048
  4. VYTORIN [Suspect]
     Dosage: UNK
     Route: 048

REACTIONS (3)
  - ALANINE AMINOTRANSFERASE INCREASED [None]
  - ASPARTATE AMINOTRANSFERASE INCREASED [None]
  - GAMMA-GLUTAMYLTRANSFERASE INCREASED [None]
